FAERS Safety Report 9347018 (Version 1)
Quarter: 2013Q2

REPORT INFORMATION
  Report Type: Report from Study
  Country: BR (occurrence: BR)
  Receive Date: 20130613
  Receipt Date: 20130613
  Transmission Date: 20140414
  Serious: Yes (Other)
  Sender: FDA-Public Use
  Company Number: BR-ABBOTT-13P-020-1103085-00

PATIENT
  Age: 40 Year
  Sex: Female
  Weight: 61 kg

DRUGS (2)
  1. HUMIRA [Suspect]
     Indication: CROHN^S DISEASE
     Route: 058
     Dates: start: 201212, end: 20130516
  2. AZATHIOPRINE [Concomitant]
     Indication: CROHN^S DISEASE
     Route: 048
     Dates: start: 2010

REACTIONS (4)
  - Ovarian cyst ruptured [Unknown]
  - Peritonitis [Recovering/Resolving]
  - Haemorrhagic ovarian cyst [Unknown]
  - Peritoneal haemorrhage [Unknown]
